FAERS Safety Report 7300469-9 (Version None)
Quarter: 2011Q1

REPORT INFORMATION
  Report Type: 
  Country: None (occurrence: None)
  Receive Date: 20110217
  Receipt Date: 20110211
  Transmission Date: 20110831
  Serious: Yes (Death)
  Sender: FDA-Public Use
  Company Number: US-GILEAD-2010-0034199

PATIENT
  Sex: Female

DRUGS (1)
  1. LETAIRIS [Suspect]
     Indication: PULMONARY ARTERIAL HYPERTENSION
     Route: 048
     Dates: start: 20090605, end: 20101201

REACTIONS (3)
  - RENAL FAILURE [None]
  - CHRONIC RESPIRATORY FAILURE [None]
  - ACUTE RESPIRATORY FAILURE [None]
